FAERS Safety Report 5134355-X (Version None)
Quarter: 2006Q4

REPORT INFORMATION
  Report Type: 
  Country: None (occurrence: None)
  Receive Date: 20061025
  Receipt Date: 20060719
  Transmission Date: 20070319
  Serious: Yes (Hospitalization)
  Sender: FDA-Public Use
  Company Number: FR-BAYER-200610673BFR

PATIENT
  Age: 55 Year
  Sex: Male
  Weight: 75 kg

DRUGS (10)
  1. SORAFENIB [Suspect]
     Indication: RENAL CELL CARCINOMA STAGE UNSPECIFIED
     Dosage: TOTAL DAILY DOSE: 800 MG  UNIT DOSE: 200 MG
     Route: 048
     Dates: start: 20060321, end: 20060719
  2. LASIX [Concomitant]
     Indication: OEDEMA
     Route: 042
     Dates: start: 20060713, end: 20060714
  3. MORPHINE SULFATE [Concomitant]
     Indication: PAIN
     Route: 048
     Dates: start: 20060713
  4. NEXIUM [Concomitant]
     Indication: GASTROOESOPHAGEAL REFLUX DISEASE
     Route: 048
     Dates: start: 20060715
  5. SKENAN [Concomitant]
     Indication: PAIN
     Route: 048
     Dates: start: 20060717
  6. DOLIPRANE [Concomitant]
     Indication: ABDOMINAL PAIN
     Route: 065
     Dates: start: 20060201, end: 20060701
  7. VENTOLIN [Concomitant]
     Indication: COUGH
     Route: 065
     Dates: start: 20060601, end: 20060701
  8. NEOCODION [Concomitant]
     Indication: COUGH
     Route: 065
     Dates: start: 20060613, end: 20060701
  9. DEXERYL [Concomitant]
     Indication: PALMAR-PLANTAR ERYTHRODYSAESTHESIA SYNDROME
     Route: 061
     Dates: start: 20060401, end: 20060701
  10. SODIUM BICARBONATE [Concomitant]
     Indication: STOMATITIS
     Route: 002
     Dates: start: 20060421, end: 20060701

REACTIONS (9)
  - DRUG INEFFECTIVE [None]
  - DYSPNOEA [None]
  - LYMPHANGITIS [None]
  - METASTASES TO LYMPH NODES [None]
  - METASTASES TO RETROPERITONEUM [None]
  - METASTASES TO THE MEDIASTINUM [None]
  - NEOPLASM PROGRESSION [None]
  - PLEURAL EFFUSION [None]
  - PULMONARY HYPERTENSION [None]
